FAERS Safety Report 9229982 (Version 1)
Quarter: 2013Q2

REPORT INFORMATION
  Report Type: Spontaneous
  Country: US (occurrence: US)
  Receive Date: 20130415
  Receipt Date: 20130415
  Transmission Date: 20140414
  Serious: No
  Sender: FDA-Public Use
  Company Number: US-JNJFOC-20130309858

PATIENT
  Age: 19 Year
  Sex: Female
  Weight: 83.92 kg

DRUGS (7)
  1. INVEGA [Suspect]
     Indication: ABNORMAL BEHAVIOUR
     Route: 048
     Dates: start: 20130227, end: 20130304
  2. INVEGA [Suspect]
     Indication: BIPOLAR DISORDER
     Route: 048
     Dates: start: 20130227, end: 20130304
  3. INVEGA SUSTENNA [Suspect]
     Indication: ABNORMAL BEHAVIOUR
     Route: 030
     Dates: start: 20130304
  4. INVEGA SUSTENNA [Suspect]
     Indication: BIPOLAR DISORDER
     Route: 030
     Dates: start: 20130304
  5. CELEXA [Concomitant]
     Indication: BIPOLAR DISORDER
     Route: 048
  6. CLARITIN [Concomitant]
     Indication: MULTIPLE ALLERGIES
     Route: 048
  7. ALBUTEROL [Concomitant]
     Indication: ASTHMA
     Route: 055

REACTIONS (1)
  - Drug dose omission [Not Recovered/Not Resolved]
